FAERS Safety Report 9371005 (Version 4)
Quarter: 2014Q2

REPORT INFORMATION
  Report Type: Report from Study
  Country: GB (occurrence: GB)
  Receive Date: 20130627
  Receipt Date: 20140523
  Transmission Date: 20141212
  Serious: No
  Sender: FDA-Public Use
  Company Number: GB-ROCHE-1242066

PATIENT
  Age: 82 Year
  Sex: Female

DRUGS (2)
  1. RANIBIZUMAB [Suspect]
     Indication: PRODUCT USED FOR UNKNOWN INDICATION
     Route: 065
     Dates: start: 20110630
  2. RANIBIZUMAB [Suspect]
     Route: 065
     Dates: start: 20120418

REACTIONS (2)
  - Eye haemorrhage [Recovered/Resolved]
  - Conjunctival haemorrhage [Recovered/Resolved]
